FAERS Safety Report 7519312-8 (Version None)
Quarter: 2011Q2

REPORT INFORMATION
  Report Type: 
  Country: None (occurrence: None)
  Receive Date: 20110523
  Receipt Date: 20110512
  Transmission Date: 20111010
  Serious: Yes (Other)
  Sender: FDA-Public Use
  Company Number: WAES 1105USA02408

PATIENT
  Age: 54 Year
  Sex: Female
  Weight: 87.5442 kg

DRUGS (16)
  1. LEVAQUIN [Suspect]
     Indication: BRONCHITIS
     Dosage: 750 MG/DAILY/PO
     Route: 048
     Dates: start: 20101201, end: 20101201
  2. IBUPROFEN [Concomitant]
  3. PANTOPRAZOLE [Concomitant]
  4. ZOCOR [Suspect]
     Indication: BLOOD CHOLESTEROL
     Dosage: 20 MG/DAILY/PO
     Route: 048
  5. OMEGA-3 MARINE TRIGLYCERIDES [Concomitant]
  6. MAALOX (ALUMINUM HYDROXIDE) (+) M [Concomitant]
  7. PROTONIX [Concomitant]
  8. XANAX [Concomitant]
  9. CITRUCEL (METHYLCELLULOSE) [Concomitant]
  10. LIALDA [Concomitant]
  11. PREDNISONE [Suspect]
     Indication: COLITIS ULCERATIVE
     Dosage: 10 MG/DAILY
  12. CALCIUM CARBONATE [Concomitant]
  13. REMICADE [Suspect]
     Indication: COLITIS ULCERATIVE
     Dosage: 430 MG/Q8WK/IV
     Route: 042
     Dates: start: 20101101
  14. MESALAMINE [Concomitant]
  15. PREDNISONE [Suspect]
     Indication: COLITIS ULCERATIVE
     Dosage: 5 MG/DAILY
     Dates: end: 20110131
  16. NITROGLYCERIN [Concomitant]

REACTIONS (14)
  - BRONCHITIS [None]
  - JOINT STIFFNESS [None]
  - PAIN IN EXTREMITY [None]
  - OEDEMA PERIPHERAL [None]
  - MUSCULOSKELETAL STIFFNESS [None]
  - COLITIS ULCERATIVE [None]
  - ARTHRALGIA [None]
  - HAEMOGLOBIN DECREASED [None]
  - IRON DEFICIENCY [None]
  - OROPHARYNGEAL PAIN [None]
  - INSOMNIA [None]
  - RHINORRHOEA [None]
  - CONDITION AGGRAVATED [None]
  - MYALGIA [None]
